FAERS Safety Report 18975734 (Version 1)
Quarter: 2021Q1

REPORT INFORMATION
  Report Type: Spontaneous
  Country: GB (occurrence: GB)
  Receive Date: 20210305
  Receipt Date: 20210305
  Transmission Date: 20210420
  Serious: Yes (Other)
  Sender: FDA-Public Use
  Company Number: GB-TAKEDA-2021TJP006880

PATIENT
  Age: 61 Year
  Sex: Female
  Weight: 85.27 kg

DRUGS (4)
  1. LANSOPRAZOLE. [Suspect]
     Active Substance: LANSOPRAZOLE
     Indication: PRODUCT USED FOR UNKNOWN INDICATION
     Dosage: UNK
     Route: 048
     Dates: start: 20210203, end: 20210205
  2. CANDESARTAN CILEXETIL. [Concomitant]
     Active Substance: CANDESARTAN CILEXETIL
     Dosage: UNK
  3. OMEPRAZOLE. [Suspect]
     Active Substance: OMEPRAZOLE
     Indication: PRODUCT USED FOR UNKNOWN INDICATION
     Dosage: 20 MILLIGRAM
     Route: 048
     Dates: start: 20210206, end: 20210211
  4. LANSOPRAZOLE. [Suspect]
     Active Substance: LANSOPRAZOLE
     Dosage: UNK
     Route: 065

REACTIONS (9)
  - Diverticulitis [Recovered/Resolved]
  - Poor quality sleep [Unknown]
  - Diarrhoea [Recovered/Resolved with Sequelae]
  - Bowel movement irregularity [Recovering/Resolving]
  - Decreased appetite [Unknown]
  - Frequent bowel movements [Unknown]
  - Bowel movement irregularity [Recovered/Resolved with Sequelae]
  - Myalgia [Unknown]
  - Nausea [Unknown]

NARRATIVE: CASE EVENT DATE: 20210203
